FAERS Safety Report 11813005 (Version 1)
Quarter: 2015Q4

REPORT INFORMATION
  Report Type: Spontaneous
  Country: DE (occurrence: DE)
  Receive Date: 20151209
  Receipt Date: 20151209
  Transmission Date: 20160305
  Serious: Yes (Hospitalization, Other)
  Sender: FDA-Public Use
  Company Number: DE-AUROBINDO-AUR-APL-2015-11044

PATIENT
  Sex: Female

DRUGS (4)
  1. LITHIUM. [Suspect]
     Active Substance: LITHIUM
     Indication: BIPOLAR DISORDER
     Dosage: UNK
     Route: 048
     Dates: start: 20140812, end: 20150401
  2. CEFUROXIME. [Concomitant]
     Active Substance: CEFUROXIME
     Indication: PRODUCT USED FOR UNKNOWN INDICATION
     Dosage: 1500 MG, DAILY
     Route: 042
     Dates: start: 20150329, end: 20150401
  3. CELESTAN                           /00008501/ [Concomitant]
     Indication: MATERNAL THERAPY TO ENHANCE FOETAL LUNG MATURITY
     Dosage: 12 MG, DAILY
     Route: 030
     Dates: start: 20150329, end: 20150330
  4. QUETIAPINE 300MG [Suspect]
     Active Substance: QUETIAPINE
     Indication: BIPOLAR DISORDER
     Dosage: 300 MG, DAILY
     Route: 048
     Dates: start: 20140812, end: 20150401

REACTIONS (4)
  - Exposure during pregnancy [Unknown]
  - Gestational diabetes [Recovered/Resolved]
  - Preterm premature rupture of membranes [Unknown]
  - Hypothyroidism [Unknown]
